FAERS Safety Report 12327446 (Version 1)
Quarter: 2016Q2

REPORT INFORMATION
  Report Type: Spontaneous
  Country: US (occurrence: None)
  Receive Date: 20160502
  Receipt Date: 20160502
  Transmission Date: 20160815
  Serious: No
  Sender: FDA-Public Use
  Company Number: None

PATIENT
  Age: 81 Year
  Sex: Female

DRUGS (12)
  1. FLUTICASONE [Concomitant]
     Active Substance: FLUTICASONE\FLUTICASONE PROPIONATE
  2. JANUVIA [Concomitant]
     Active Substance: SITAGLIPTIN PHOSPHATE
  3. TORSEMIDE. [Concomitant]
     Active Substance: TORSEMIDE
  4. DIGOXIN. [Concomitant]
     Active Substance: DIGOXIN
  5. REVATIO [Concomitant]
     Active Substance: SILDENAFIL CITRATE
  6. METFORMIN [Concomitant]
     Active Substance: METFORMIN HYDROCHLORIDE
  7. SILDENAFIL 20 MG TAB GREENSTONE LTD [Suspect]
     Active Substance: SILDENAFIL CITRATE
     Indication: COR PULMONALE CHRONIC
     Dosage: 20MG X 3 = 60MG QD ORAL
     Route: 048
     Dates: start: 201603
  8. PRAVASTATIN [Concomitant]
     Active Substance: PRAVASTATIN\PRAVASTATIN SODIUM
  9. OMEPRAZOLE. [Concomitant]
     Active Substance: OMEPRAZOLE
  10. ACARBOSE. [Concomitant]
     Active Substance: ACARBOSE
  11. TRACLEER [Concomitant]
     Active Substance: BOSENTAN
  12. ENOXAPARIN [Concomitant]
     Active Substance: ENOXAPARIN

REACTIONS (1)
  - Transfusion [None]

NARRATIVE: CASE EVENT DATE: 201604
